FAERS Safety Report 10388709 (Version 1)
Quarter: 2014Q1

REPORT INFORMATION
  Report Type: Spontaneous
  Country: US (occurrence: None)
  Receive Date: 20140306
  Receipt Date: 20140306
  Transmission Date: 20141002
  Serious: Yes (Hospitalization, Other)
  Sender: FDA-Public Use
  Company Number: 163-21880-13071114

PATIENT
  Age: 62 Year
  Sex: Male

DRUGS (9)
  1. REVLIMID (LENALIDOMIDE) (25 MILLIGRAM, CAPSULES) [Suspect]
     Indication: PLASMA CELL MYELOMA
     Route: 048
     Dates: start: 200811
  2. ATENOLOL [Concomitant]
  3. SIMVASTATIN [Concomitant]
  4. LEVOFLOXACIN [Concomitant]
  5. OXYCODONE HCL [Concomitant]
  6. MULTIVITAMINS [Concomitant]
  7. POTASSIUM CHLORIDE [Concomitant]
  8. FLECAINDE ACETATE [Concomitant]
  9. ASA (ACETYLSALICYLIC ACID) [Concomitant]

REACTIONS (3)
  - Pneumonia [None]
  - White blood cell count decreased [None]
  - Red blood cell count decreased [None]
